FAERS Safety Report 8598654-1 (Version None)
Quarter: 2012Q3

REPORT INFORMATION
  Report Type: 
  Country: None (occurrence: None)
  Receive Date: 20120816
  Receipt Date: 20120809
  Transmission Date: 20120928
  Serious: Yes (Hospitalization)
  Sender: FDA-Public Use
  Company Number: FR-ROCHE-1100107

PATIENT
  Age: 58 Year
  Sex: Male

DRUGS (10)
  1. TRANSIPEG (FRANCE) [Concomitant]
  2. ACTISKENAN (MORPHINE CHLORHYDRATE) [Concomitant]
  3. OFLOXACIN [Concomitant]
     Route: 048
     Dates: start: 20120601
  4. ACETAMINOPHEN [Concomitant]
     Route: 048
     Dates: start: 20120601
  5. NORMACOL (FRANCE) [Concomitant]
  6. IOVERSOL [Suspect]
     Indication: PRODUCT USED FOR UNKNOWN INDICATION
     Dosage: 300MG DL/ML
     Route: 042
     Dates: start: 20120620, end: 20120620
  7. ROCEPHIN [Suspect]
     Indication: PRODUCT USED FOR UNKNOWN INDICATION
     Route: 042
     Dates: start: 20120617, end: 20120620
  8. PRIMPERAN ELIXIR [Suspect]
     Indication: PRODUCT USED FOR UNKNOWN INDICATION
     Dosage: 10MG/2ML
     Route: 042
     Dates: start: 20120617, end: 20120620
  9. SKENAN LP [Concomitant]
     Route: 048
     Dates: start: 20120619
  10. ZOLPIDEM TARTRATE [Concomitant]
     Route: 048
     Dates: start: 20120601

REACTIONS (1)
  - SIALOADENITIS [None]
